FAERS Safety Report 13949267 (Version 1)
Quarter: 2017Q3

REPORT INFORMATION
  Report Type: Spontaneous
  Country: US (occurrence: US)
  Receive Date: 20170908
  Receipt Date: 20170908
  Transmission Date: 20171128
  Serious: Yes (Hospitalization, Other)
  Sender: FDA-Public Use
  Company Number: US-GLAXOSMITHKLINE-US2017139396

PATIENT
  Age: 64 Year
  Sex: Male

DRUGS (2)
  1. NUCALA [Suspect]
     Active Substance: MEPOLIZUMAB
     Indication: ASTHMA
  2. NUCALA [Suspect]
     Active Substance: MEPOLIZUMAB
     Indication: CHRONIC OBSTRUCTIVE PULMONARY DISEASE
     Dosage: 100 MG, UNK
     Route: 058
     Dates: start: 20170613

REACTIONS (7)
  - Pulmonary fibrosis [Not Recovered/Not Resolved]
  - Aspergillus infection [Unknown]
  - Chronic obstructive pulmonary disease [Recovering/Resolving]
  - Lung disorder [Unknown]
  - Pneumonia [Unknown]
  - Neoplasm [Unknown]
  - Product use in unapproved indication [Unknown]

NARRATIVE: CASE EVENT DATE: 20170618
